FAERS Safety Report 14509789 (Version 2)
Quarter: 2018Q1

REPORT INFORMATION
  Report Type: Spontaneous
  Country: US (occurrence: US)
  Receive Date: 20180209
  Receipt Date: 20180321
  Transmission Date: 20180509
  Serious: No
  Sender: FDA-Public Use
  Company Number: US-PFIZER INC-2018054354

PATIENT
  Age: 82 Year
  Sex: Female

DRUGS (4)
  1. LOSARTAN. [Concomitant]
     Active Substance: LOSARTAN
     Indication: CARDIAC DISORDER
     Dosage: 100 MG, 1X/DAY
     Route: 048
  2. PREMARIN [Suspect]
     Active Substance: ESTROGENS, CONJUGATED
     Indication: VULVOVAGINAL DRYNESS
     Dosage: UNK (0.5, THE SMALLEST DOSE, ON M-W-F)
     Route: 067
     Dates: start: 20180101, end: 20180202
  3. SYNTHROID [Concomitant]
     Active Substance: LEVOTHYROXINE SODIUM
     Indication: THYROID DISORDER
     Dosage: 88 UG, 1X/DAY
     Route: 048
     Dates: start: 1961
  4. PREMARIN [Suspect]
     Active Substance: ESTROGENS, CONJUGATED
     Dosage: UNK ( 0.5/9MG VIAL VAGINAL APPLICATOR, CREAM TO VAGINA MONDAY WEDNESDAY FRIDAY)
     Route: 067
     Dates: start: 20180101, end: 20180202

REACTIONS (9)
  - Pain [Not Recovered/Not Resolved]
  - Hypoaesthesia [Unknown]
  - Pollakiuria [Unknown]
  - Paraesthesia [Unknown]
  - Drug ineffective [Unknown]
  - Pelvic pain [Unknown]
  - Malaise [Unknown]
  - Pain in extremity [Unknown]
  - Product use issue [Unknown]
